FAERS Safety Report 23213014 (Version 1)
Quarter: 2023Q4

REPORT INFORMATION
  Report Type: Spontaneous
  Country: US (occurrence: US)
  Receive Date: 20231121
  Receipt Date: 20231121
  Transmission Date: 20240110
  Serious: Yes (Other)
  Sender: FDA-Public Use
  Company Number: US-ENDO-CASE-0045216

PATIENT
  Sex: Female

DRUGS (3)
  1. TRAMADOL HYDROCHLORIDE [Suspect]
     Active Substance: TRAMADOL HYDROCHLORIDE
  2. PERCOCET [Suspect]
     Active Substance: ACETAMINOPHEN\OXYCODONE HYDROCHLORIDE
  3. XANAX [Suspect]
     Active Substance: ALPRAZOLAM

REACTIONS (5)
  - Overdose [Unknown]
  - Dependence [Unknown]
  - Confusional state [Unknown]
  - Depression [Unknown]
  - Suicidal ideation [Unknown]
